FAERS Safety Report 16760506 (Version 1)
Quarter: 2019Q4

REPORT INFORMATION
  Report Type: Spontaneous
  Country: US (occurrence: US)
  Receive Date: 20190830
  Receipt Date: 20190830
  Transmission Date: 20200122
  Serious: Yes (Disabling)
  Sender: FDA-Public Use
  Company Number: None

PATIENT
  Age: 64 Year
  Sex: Female

DRUGS (8)
  1. TIZANIDINE TAB 4 MG [Concomitant]
  2. GLYB/METFORM TAB 2.5-500 [Concomitant]
  3. MORPHINE SUL TAB 15 MG [Concomitant]
  4. LEVOTHYROXIN TAB 175 MG [Concomitant]
  5. ATENOL/CHLOR TAB 100-25 MG [Concomitant]
  6. HYDROXYUREA. [Suspect]
     Active Substance: HYDROXYUREA
     Indication: PRODUCT USED FOR UNKNOWN INDICATION
     Route: 048
     Dates: start: 20180706
  7. OXYCOD/APAP TAB 7.5-325 [Concomitant]
  8. OXYCODONE TAB 5 MG [Concomitant]

REACTIONS (3)
  - Physical product label issue [None]
  - Product label issue [None]
  - Therapy cessation [None]
